FAERS Safety Report 7638282-5 (Version None)
Quarter: 2011Q3

REPORT INFORMATION
  Report Type: 
  Country: None (occurrence: None)
  Receive Date: 20110726
  Receipt Date: 20110726
  Transmission Date: 20111222
  Serious: Yes (Death)
  Sender: FDA-Public Use
  Company Number: None

PATIENT
  Age: 67 Year
  Sex: Male

DRUGS (11)
  1. ASPIRIN [Concomitant]
  2. ROBAXIN [Concomitant]
  3. NOVOLOG [Concomitant]
  4. SERTRALINE HYDROCHLORIDE [Concomitant]
  5. FAMOTIDINE [Concomitant]
  6. PRAVASTATIN [Concomitant]
  7. VARDENAFIL HYDROCHLORIDE (LEVITRA) [Concomitant]
  8. LANTUS [Concomitant]
  9. REVLIMID [Suspect]
     Indication: MULTIPLE MYELOMA
     Dosage: REVLIMID 10MG DAILY X21D ORALLY
     Route: 048
     Dates: start: 20110106, end: 20110125
  10. DECADRON [Concomitant]
  11. OMEPRAZOLE [Concomitant]

REACTIONS (4)
  - URTICARIA [None]
  - BLOOD GLUCOSE INCREASED [None]
  - FEELING ABNORMAL [None]
  - PRURITUS GENERALISED [None]
